FAERS Safety Report 4807737-0 (Version None)
Quarter: 2005Q4

REPORT INFORMATION
  Report Type: 
  Country: None (occurrence: None)
  Receive Date: 20051019
  Receipt Date: 20051012
  Transmission Date: 20060501
  Serious: Yes (Other)
  Sender: FDA-Public Use
  Company Number: DE-2005-021054

PATIENT
  Age: 42 Year
  Sex: Male

DRUGS (3)
  1. BETAFERON (INTERFERON BETA - 1B) INJECTION, 250UG [Suspect]
     Indication: MULTIPLE SCLEROSIS
     Dosage: 6 MIU, SUBCUTANEOUS
     Route: 058
     Dates: start: 20050901
  2. IBUPROFEN [Concomitant]
     Indication: MULTIPLE SCLEROSIS
     Dosage: 6 MIU, SUBCUTANEOUS
     Route: 058
     Dates: start: 20050901
  3. IBUPROFEN [Concomitant]

REACTIONS (1)
  - VITREOUS HAEMORRHAGE [None]
